FAERS Safety Report 16730511 (Version 1)
Quarter: 2019Q3

REPORT INFORMATION
  Report Type: Spontaneous
  Country: PL (occurrence: PL)
  Receive Date: 20190822
  Receipt Date: 20190822
  Transmission Date: 20191005
  Serious: Yes (Hospitalization, Disabling)
  Sender: FDA-Public Use
  Company Number: PL-ROCHE-2379025

PATIENT
  Sex: Male
  Weight: 93 kg

DRUGS (12)
  1. XARTAN [LOSARTAN POTASSIUM] [Concomitant]
  2. PLAVIX [Concomitant]
     Active Substance: CLOPIDOGREL BISULFATE
  3. ATORVASTEROL [Concomitant]
     Active Substance: ATORVASTATIN
  4. DORETA [Concomitant]
     Active Substance: ACETAMINOPHEN\TRAMADOL HYDROCHLORIDE
  5. ROACTEMRA [Suspect]
     Active Substance: TOCILIZUMAB
     Indication: RHEUMATOID ARTHRITIS
     Route: 042
     Dates: start: 20190314, end: 201906
  6. NOLPAZA [Concomitant]
     Active Substance: PANTOPRAZOLE SODIUM
  7. TAMISPRAS [Concomitant]
  8. AZATHIOPRINE. [Concomitant]
     Active Substance: AZATHIOPRINE
     Dosage: 150 MG PER DAY
     Route: 065
  9. ENCORTON [PREDNISONE] [Concomitant]
     Active Substance: PREDNISONE
     Route: 065
  10. KALIPOZ [Concomitant]
     Active Substance: POTASSIUM CHLORIDE
  11. FUROSEMID [FUROSEMIDE] [Concomitant]
     Active Substance: FUROSEMIDE
  12. PREDUCTAL [Concomitant]
     Active Substance: TRIMETAZIDINE DIHYDROCHLORIDE

REACTIONS (1)
  - Interstitial lung disease [Recovering/Resolving]
